FAERS Safety Report 6128185-X (Version None)
Quarter: 2009Q1

REPORT INFORMATION
  Report Type: 
  Country: None (occurrence: None)
  Receive Date: 20090323
  Receipt Date: 20090311
  Transmission Date: 20090719
  Serious: Yes (Hospitalization)
  Sender: FDA-Public Use
  Company Number: US-ROCHE-621910

PATIENT
  Sex: Female
  Weight: 67 kg

DRUGS (17)
  1. CAPECITABINE [Suspect]
     Indication: BREAST CANCER
     Dosage: GIVEN FROM DAYS 1-14 EVERY 3 WEEKS PER PROTOCOL
     Route: 048
     Dates: start: 20080723
  2. CAPECITABINE [Suspect]
     Route: 048
  3. SUNITINIB [Suspect]
     Indication: BREAST CANCER
     Dosage: CONTINUOUS REGIMEN PER PROTOCOL
     Route: 048
     Dates: start: 20080723
  4. SUNITINIB [Suspect]
     Route: 048
  5. EXFORGE [Concomitant]
     Dates: start: 19980101
  6. DIOVAN [Concomitant]
     Dates: start: 19980101
  7. LASIX [Concomitant]
     Dates: start: 19980101
  8. HYDROCODONE [Concomitant]
     Dates: start: 20060101
  9. ATIVAN [Concomitant]
     Dates: start: 20060101
  10. COMPAZINE [Concomitant]
     Dates: start: 20080721
  11. LOPERAMIDE HCL [Concomitant]
     Dates: start: 20050729
  12. PREDNISONE [Concomitant]
     Dates: start: 20080813
  13. PRILOSEC [Concomitant]
     Dates: start: 20080401
  14. ULTRACET [Concomitant]
     Dates: start: 20020101
  15. PRED FORTE [Concomitant]
     Dates: start: 20050101
  16. DIPROLENE [Concomitant]
     Dates: start: 20080301
  17. KYTRIL [Concomitant]
     Dates: start: 20080721

REACTIONS (1)
  - HYPONATRAEMIA [None]
